FAERS Safety Report 5515450-X (Version None)
Quarter: 2007Q4

REPORT INFORMATION
  Report Type: 
  Country: None (occurrence: None)
  Receive Date: 20071113
  Receipt Date: 20070220
  Transmission Date: 20080405
  Serious: No
  Sender: FDA-Public Use
  Company Number: A0640264A

PATIENT
  Age: 70 Year
  Sex: Female

DRUGS (16)
  1. COREG [Suspect]
     Dosage: 6.25MG PER DAY
     Route: 048
  2. AMITRIPTYLINE HCL [Concomitant]
  3. SIMVASTATIN [Concomitant]
  4. PREMARIN [Concomitant]
  5. VIT C [Concomitant]
  6. CALCIUM + MAGNESIUM SUPPLEMENT [Concomitant]
  7. GLUCOSAMINE CHONDROITIN [Concomitant]
  8. M.V.I. [Concomitant]
  9. LORATADINE [Concomitant]
  10. FLONASE [Concomitant]
  11. NAPROXEN [Concomitant]
  12. XANAX [Concomitant]
  13. SELENIUM [Concomitant]
  14. ASPIRIN [Concomitant]
  15. PRILOSEC [Concomitant]
  16. PLAVIX [Concomitant]

REACTIONS (2)
  - PAIN IN EXTREMITY [None]
  - SKIN DISCOLOURATION [None]
